FAERS Safety Report 7226786-9 (Version None)
Quarter: 2011Q1

REPORT INFORMATION
  Report Type: 
  Country: None (occurrence: None)
  Receive Date: 20110114
  Receipt Date: 20110105
  Transmission Date: 20110831
  Serious: Yes (Other)
  Sender: FDA-Public Use
  Company Number: DE-SANOFI-AVENTIS-2010SA040837

PATIENT
  Age: 85 Year
  Sex: Female
  Weight: 54 kg

DRUGS (12)
  1. METOPROLOL SUCCINATE [Concomitant]
     Indication: CARDIAC FAILURE
     Dosage: 1/2-0-1/2 DAILY
     Route: 048
  2. KALINOR [Concomitant]
     Indication: HYPOKALAEMIA
     Route: 048
  3. MULTAQ [Suspect]
     Route: 048
     Dates: start: 20100428, end: 20100716
  4. ISOSORBIDE DINITRATE [Concomitant]
     Indication: CORONARY ARTERY DISEASE
     Route: 048
  5. METOPROLOL SUCCINATE [Concomitant]
     Indication: CORONARY ARTERY DISEASE
     Dosage: 1/2-0-1/2 DAILY
     Route: 048
  6. DELIX [Concomitant]
     Indication: CARDIAC FAILURE
     Route: 048
  7. LEVOTHYROXINE SODIUM [Concomitant]
     Route: 048
  8. ISOSORBIDE DINITRATE [Concomitant]
     Indication: CARDIAC FAILURE
     Route: 048
  9. CALCIUM [Concomitant]
     Indication: HYPOPARATHYROIDISM
     Route: 048
  10. LACTULOSE [Concomitant]
     Indication: CONSTIPATION
     Route: 048
  11. DELIX [Concomitant]
     Indication: CORONARY ARTERY DISEASE
     Route: 048
  12. ACETYLSALICYLIC ACID [Concomitant]
     Indication: CORONARY ARTERY DISEASE
     Route: 048

REACTIONS (8)
  - C-REACTIVE PROTEIN INCREASED [None]
  - HEPATITIS [None]
  - ALANINE AMINOTRANSFERASE INCREASED [None]
  - BLOOD CHOLINESTERASE DECREASED [None]
  - BLOOD ALKALINE PHOSPHATASE INCREASED [None]
  - ASPARTATE AMINOTRANSFERASE INCREASED [None]
  - GAMMA-GLUTAMYLTRANSFERASE INCREASED [None]
  - BLOOD BILIRUBIN INCREASED [None]
